FAERS Safety Report 7694283-2 (Version None)
Quarter: 2011Q3

REPORT INFORMATION
  Report Type: 
  Country: None (occurrence: None)
  Receive Date: 20110819
  Receipt Date: 20110809
  Transmission Date: 20111222
  Serious: Yes (Other)
  Sender: FDA-Public Use
  Company Number: CA-GLAXOSMITHKLINE-B0740705A

PATIENT
  Age: 31 Year
  Sex: Female

DRUGS (1)
  1. PAROXETINE HCL [Suspect]
     Indication: DEPRESSION
     Dosage: 60MG PER DAY
     Route: 065

REACTIONS (10)
  - BRIEF PSYCHOTIC DISORDER, WITH POSTPARTUM ONSET [None]
  - ILLUSION [None]
  - PRESSURE OF SPEECH [None]
  - LIVE BIRTH [None]
  - PSYCHOMOTOR HYPERACTIVITY [None]
  - MANIA [None]
  - MATERNAL EXPOSURE DURING PREGNANCY [None]
  - HALLUCINATION, VISUAL [None]
  - EUPHORIC MOOD [None]
  - DRUG WITHDRAWAL SYNDROME [None]
